FAERS Safety Report 8131413-2 (Version None)
Quarter: 2012Q1

REPORT INFORMATION
  Report Type: 
  Country: None (occurrence: None)
  Receive Date: 20120213
  Receipt Date: 20120203
  Transmission Date: 20120608
  Serious: Yes (Other)
  Sender: FDA-Public Use
  Company Number: US-BAYER-2011-038241

PATIENT
  Age: 31 Year
  Sex: Female
  Weight: 49.887 kg

DRUGS (8)
  1. YAZ [Suspect]
     Indication: CONTRACEPTION
     Dosage: UNK
     Route: 048
     Dates: start: 20071121, end: 20080519
  2. DROSPIRENONE AND ETHINYL ESTRADIOL [Suspect]
     Indication: ALOPECIA
  3. DROSPIRENONE AND ETHINYL ESTRADIOL [Suspect]
     Indication: PREMENSTRUAL SYNDROME
  4. YAZ [Suspect]
     Indication: ACNE
  5. YAZ [Suspect]
     Indication: PREMENSTRUAL SYNDROME
  6. DROSPIRENONE AND ETHINYL ESTRADIOL [Suspect]
     Indication: ACNE
  7. YAZ [Suspect]
     Indication: ALOPECIA
  8. DROSPIRENONE AND ETHINYL ESTRADIOL [Suspect]
     Indication: CONTRACEPTION
     Dosage: UNK
     Route: 048
     Dates: start: 20071121, end: 20080519

REACTIONS (13)
  - PAIN IN EXTREMITY [None]
  - EMOTIONAL DISTRESS [None]
  - FEAR OF DISEASE [None]
  - HYPOAESTHESIA [None]
  - PAIN [None]
  - THROMBOPHLEBITIS SUPERFICIAL [None]
  - CHEST PAIN [None]
  - CANDIDIASIS [None]
  - ANXIETY [None]
  - GENERAL PHYSICAL HEALTH DETERIORATION [None]
  - PARAESTHESIA [None]
  - CONTUSION [None]
  - STRESS [None]
